APPROVED DRUG PRODUCT: FERRIPROX
Active Ingredient: DEFERIPRONE
Strength: 1GM
Dosage Form/Route: TABLET;ORAL
Application: N212269 | Product #001
Applicant: CHIESI USA INC
Approved: May 19, 2020 | RLD: Yes | RS: Yes | Type: RX

PATENTS:
Patent 11723874 | Expires: Oct 25, 2038
Patent 11357731 | Expires: Oct 25, 2038
Patent 10940115 | Expires: Oct 25, 2038
Patent 10780055 | Expires: Oct 25, 2038
Patent 11458103 | Expires: Oct 25, 2038
Patent 10940116 | Expires: Oct 25, 2038

EXCLUSIVITY:
Code: ODE-417 | Date: Apr 30, 2028
Code: ODE-420 | Date: Apr 30, 2028
Code: ODE-421 | Date: Apr 30, 2028